FAERS Safety Report 6816934-4 (Version None)
Quarter: 2010Q3

REPORT INFORMATION
  Report Type: 
  Country: None (occurrence: None)
  Receive Date: 20100706
  Receipt Date: 20100628
  Transmission Date: 20110219
  Serious: Yes (Other)
  Sender: FDA-Public Use
  Company Number: IT-BRISTOL-MYERS SQUIBB COMPANY-15173826

PATIENT
  Age: 77 Year
  Sex: Female

DRUGS (3)
  1. COUMADIN [Suspect]
     Indication: CARDIAC DISORDER
     Dosage: FROM 09FEB1999 TO 01MAR2010; DOSE INCREASED TO 13.75MG/WK
     Route: 048
     Dates: start: 19990209
  2. CORDARONE [Concomitant]
     Dosage: TABS
     Route: 048
  3. ZANTAC [Concomitant]
     Dosage: 150 MG FILM COATED ORAL TABS
     Route: 048

REACTIONS (2)
  - INTERNATIONAL NORMALISED RATIO DECREASED [None]
  - SYNCOPE [None]
